FAERS Safety Report 4649048-2 (Version None)
Quarter: 2005Q2

REPORT INFORMATION
  Report Type: 
  Country: None (occurrence: None)
  Receive Date: 20050429
  Receipt Date: 20050422
  Transmission Date: 20051028
  Serious: Yes (Death)
  Sender: FDA-Public Use
  Company Number: TR-JNJFOC-20050405525

PATIENT
  Age: 50 Year
  Sex: Female
  Weight: 63 kg

DRUGS (7)
  1. RISPERDAL [Suspect]
     Route: 049
  2. RISPERDAL CONSTA [Suspect]
     Route: 030
  3. QUETIAPINE FUMARATE [Suspect]
     Dosage: 900 MG/ 2X1
     Route: 049
  4. QUETIAPINE FUMARATE [Suspect]
     Dosage: 600 MG /2 X 1
     Route: 049
  5. QUETIAPINE FUMARATE [Suspect]
     Dosage: 400 MG /2 X 1
     Route: 049
  6. CHLORPROMAZINE [Suspect]
     Dosage: 100 MG/ 4 X 1
     Route: 049
  7. BIPERIDENE [Suspect]
     Dosage: 6 MG/ 3X1
     Route: 049

REACTIONS (1)
  - LEUKOPENIA [None]
